FAERS Safety Report 21713586 (Version 1)
Quarter: 2022Q4

REPORT INFORMATION
  Report Type: Report from Study
  Country: BR (occurrence: BR)
  Receive Date: 20221212
  Receipt Date: 20221212
  Transmission Date: 20230113
  Serious: Yes (Disabling, Other)
  Sender: FDA-Public Use
  Company Number: BR-002147023-NVSC2022BR285910

PATIENT
  Age: 86 Year
  Sex: Female

DRUGS (5)
  1. EXELON PATCH [Suspect]
     Active Substance: RIVASTIGMINE
     Indication: Memory impairment
     Dosage: 9 MG, QD
     Route: 062
     Dates: start: 202210, end: 20221105
  2. BENSERAZIDE\LEVODOPA [Concomitant]
     Active Substance: BENSERAZIDE\LEVODOPA
     Indication: Parkinson^s disease
     Dosage: UNK, TID (TREATMENT STARTED 10 YEARS AGO)
     Route: 065
     Dates: start: 2012
  3. LEVOTHYROXINE [Concomitant]
     Active Substance: LEVOTHYROXINE
     Indication: Hypothyroidism
     Dosage: 87 MG, QD (TREATMENT STARTED 10 YEARS AGO)
     Route: 065
     Dates: start: 2012
  4. PANTOPRAZOLE [Concomitant]
     Active Substance: PANTOPRAZOLE
     Indication: Gastric disorder
     Dosage: 40 MG, QD (TREATMENT STARTED 10 YEARS AGO)
     Route: 065
     Dates: start: 2012
  5. QUETIAPINE [Concomitant]
     Active Substance: QUETIAPINE
     Indication: Dementia
     Dosage: 100 MG, TID
     Route: 065

REACTIONS (9)
  - Gait disturbance [Unknown]
  - Aphasia [Unknown]
  - Delirium [Recovering/Resolving]
  - Confusional state [Recovering/Resolving]
  - Aggression [Recovering/Resolving]
  - Muscle spasms [Recovering/Resolving]
  - Screaming [Recovering/Resolving]
  - Product administration interrupted [Recovering/Resolving]
  - Off label use [Recovering/Resolving]
